FAERS Safety Report 9197118 (Version 1)
Quarter: 2013Q1

REPORT INFORMATION
  Report Type: Spontaneous
  Country: CN (occurrence: CN)
  Receive Date: 20130328
  Receipt Date: 20130328
  Transmission Date: 20140127
  Serious: Yes (Hospitalization)
  Sender: FDA-Public Use
  Company Number: CN-ROCHE-1205410

PATIENT
  Age: 30 Year
  Sex: Female

DRUGS (6)
  1. MYCOPHENOLATE MOFETIL [Suspect]
     Indication: SYSTEMIC LUPUS ERYTHEMATOSUS
     Route: 065
  2. MYCOPHENOLATE MOFETIL [Suspect]
     Dosage: DOSE INCREASED
     Route: 065
  3. PREDNISONE [Suspect]
     Indication: SYSTEMIC LUPUS ERYTHEMATOSUS
     Route: 065
  4. PREDNISONE [Suspect]
     Dosage: DOSE INCREASED
     Route: 065
  5. PREDNISONE [Suspect]
     Route: 065
  6. CYCLOPHOSPHAMIDE [Concomitant]
     Dosage: ONCE MONTHLY IMPULSE THERAPY FOR CONSECUTIVE 6 MONTHS, FOLLOWED BY EVERY 3 OR 6 MONTHS FOR 2 YEARS
     Route: 065

REACTIONS (1)
  - Hepatitis B [Recovered/Resolved]
